FAERS Safety Report 5224968-9 (Version None)
Quarter: 2007Q1

REPORT INFORMATION
  Report Type: 
  Country: None (occurrence: None)
  Receive Date: 20070126
  Receipt Date: 20070115
  Transmission Date: 20070707
  Serious: Yes (Death)
  Sender: FDA-Public Use
  Company Number: FRWYE212817JAN07

PATIENT
  Age: 3 Year
  Sex: Male

DRUGS (2)
  1. EFFEXOR LP (VENLAFAXINE HYDROCHLORIDE, CAPSULE, EXTENDED RELEASE, 0) L [Suspect]
     Dosage: ORAL
     Route: 048
     Dates: start: 20040201, end: 20040201
  2. ACETAMINOPHEN [Suspect]
     Dosage: ORAL
     Route: 048
     Dates: start: 20040201, end: 20040201

REACTIONS (3)
  - ACCIDENTAL DRUG INTAKE BY CHILD [None]
  - ACCIDENTAL OVERDOSE [None]
  - FEBRILE CONVULSION [None]
